FAERS Safety Report 18576167 (Version 2)
Quarter: 2020Q4

REPORT INFORMATION
  Report Type: Spontaneous
  Country: US (occurrence: US)
  Receive Date: 20201203
  Receipt Date: 20201207
  Transmission Date: 20210114
  Serious: No
  Sender: FDA-Public Use
  Company Number: US-BIOGEN-2020BI00951459

PATIENT
  Sex: Male

DRUGS (1)
  1. TECFIDERA [Suspect]
     Active Substance: DIMETHYL FUMARATE
     Indication: MULTIPLE SCLEROSIS
     Route: 065
     Dates: start: 20150101

REACTIONS (6)
  - Rash macular [Unknown]
  - Hypoaesthesia [Unknown]
  - Flushing [Not Recovered/Not Resolved]
  - Fatigue [Unknown]
  - Urticaria [Unknown]
  - Vitamin D decreased [Unknown]
